FAERS Safety Report 4543953-3 (Version None)
Quarter: 2005Q1

REPORT INFORMATION
  Report Type: 
  Country: None (occurrence: None)
  Receive Date: 20050103
  Receipt Date: 20040726
  Transmission Date: 20050727
  Serious: Yes (Life-Threatening, Hospitalization)
  Sender: FDA-Public Use
  Company Number: GXKR2004GB00568

PATIENT
  Age: 61 Year
  Sex: Female

DRUGS (9)
  1. METFORMIN (NGX)(METFORMIN) UNKNOWN [Suspect]
     Indication: DIABETES MELLITUS
  2. ASPIRIN [Concomitant]
  3. ATENOLOL [Concomitant]
  4. CLOPIDOGREL (CLOPIDOGREL) [Concomitant]
  5. AMLODIPINE [Concomitant]
  6. LISINOPRIL [Concomitant]
  7. NITRATES (NITRATES) [Concomitant]
  8. STARLIX [Concomitant]
  9. IBUPROFEN [Concomitant]

REACTIONS (9)
  - BLOOD CREATININE INCREASED [None]
  - BLOOD POTASSIUM INCREASED [None]
  - BLOOD PRESSURE DECREASED [None]
  - BRADYCARDIA [None]
  - HYPOGLYCAEMIA [None]
  - LACTIC ACIDOSIS [None]
  - LEUKOCYTOSIS [None]
  - PANCREATITIS ACUTE [None]
  - URINE OUTPUT DECREASED [None]
